FAERS Safety Report 13462057 (Version 1)
Quarter: 2017Q2

REPORT INFORMATION
  Report Type: Spontaneous
  Country: US (occurrence: US)
  Receive Date: 20170420
  Receipt Date: 20170420
  Transmission Date: 20170830
  Serious: Yes (Disabling)
  Sender: FDA-Public Use
  Company Number: None

PATIENT
  Age: 64 Year
  Sex: Female
  Weight: 99 kg

DRUGS (14)
  1. METFORMIN [Concomitant]
     Active Substance: METFORMIN HYDROCHLORIDE
  2. LEVOTHYROXINE. [Concomitant]
     Active Substance: LEVOTHYROXINE
  3. PROBIOTIC [Concomitant]
     Active Substance: PROBIOTICS NOS
  4. DEXAMETHASONE. [Suspect]
     Active Substance: DEXAMETHASONE
     Indication: INTERVERTEBRAL DISC DEGENERATION
     Route: 048
     Dates: start: 20161015, end: 20170226
  5. GABAPENTIN. [Concomitant]
     Active Substance: GABAPENTIN
  6. TRAMADOL. [Concomitant]
     Active Substance: TRAMADOL
  7. ASPIRIN. [Concomitant]
     Active Substance: ASPIRIN
  8. MULTIVITAMIN [Concomitant]
     Active Substance: VITAMINS
  9. COLACE [Concomitant]
     Active Substance: DOCUSATE SODIUM
  10. ARIMIDEX [Concomitant]
     Active Substance: ANASTROZOLE
  11. MAGNESIUM [Concomitant]
     Active Substance: MAGNESIUM
  12. METOPROLOL. [Concomitant]
     Active Substance: METOPROLOL
  13. LISINOPRIL. [Concomitant]
     Active Substance: LISINOPRIL
  14. PRILOSEC [Concomitant]
     Active Substance: OMEPRAZOLE MAGNESIUM

REACTIONS (7)
  - Fall [None]
  - Oedema peripheral [None]
  - Muscular weakness [None]
  - Grip strength decreased [None]
  - Movement disorder [None]
  - Myopathy [None]
  - Mental impairment [None]

NARRATIVE: CASE EVENT DATE: 20170111
